FAERS Safety Report 8408879-3 (Version None)
Quarter: 2012Q2

REPORT INFORMATION
  Report Type: 
  Country: None (occurrence: None)
  Receive Date: 20120604
  Receipt Date: 20120525
  Transmission Date: 20120825
  Serious: Yes (Other)
  Sender: FDA-Public Use
  Company Number: US-ABBOTT-12P-163-0939692-00

PATIENT
  Sex: Female

DRUGS (5)
  1. ALLEGRA [Concomitant]
     Indication: HYPERSENSITIVITY
  2. LORTAB [Concomitant]
     Indication: PRODUCT USED FOR UNKNOWN INDICATION
  3. ADDERALL 5 [Concomitant]
     Indication: PRODUCT USED FOR UNKNOWN INDICATION
  4. HUMIRA [Suspect]
     Indication: PSORIASIS
     Dates: start: 20120511
  5. FLONASE [Concomitant]
     Indication: HYPERSENSITIVITY

REACTIONS (8)
  - PRODUCTIVE COUGH [None]
  - HEADACHE [None]
  - VISION BLURRED [None]
  - DIPLOPIA [None]
  - ROAD TRAFFIC ACCIDENT [None]
  - HEAD INJURY [None]
  - CHEST PAIN [None]
  - BALANCE DISORDER [None]
